FAERS Safety Report 9065377 (Version 1)
Quarter: 2013Q1

REPORT INFORMATION
  Report Type: Spontaneous
  Country: CA (occurrence: CA)
  Receive Date: 20130214
  Receipt Date: 20130214
  Transmission Date: 20140127
  Serious: Yes (Other)
  Sender: FDA-Public Use
  Company Number: CA-TEVA-386164USA

PATIENT
  Age: 73 Year
  Sex: Male
  Weight: 70 kg

DRUGS (3)
  1. TAMSULOSIN [Suspect]
     Dosage: .4 MILLIGRAM DAILY;
     Route: 065
  2. ECTOSONE [Concomitant]
     Route: 061
  3. DIOVAN HCT [Concomitant]
     Route: 065

REACTIONS (6)
  - Inspiratory capacity decreased [Recovered/Resolved]
  - Dysuria [Recovered/Resolved]
  - Tremor [Recovered/Resolved]
  - Dizziness [Recovered/Resolved]
  - Drug ineffective [Recovered/Resolved]
  - Urine flow decreased [Recovered/Resolved]
